FAERS Safety Report 6522309-8 (Version None)
Quarter: 2009Q4

REPORT INFORMATION
  Report Type: 
  Country: None (occurrence: None)
  Receive Date: 20091230
  Receipt Date: 20091222
  Transmission Date: 20100525
  Serious: Yes (Death)
  Sender: FDA-Public Use
  Company Number: B0603072A

PATIENT
  Age: 28 Year
  Sex: Female
  Weight: 80 kg

DRUGS (3)
  1. AUGMENTIN [Suspect]
     Indication: MASTITIS
     Route: 065
     Dates: start: 20091020, end: 20091021
  2. DOLIPRANE [Concomitant]
     Dosage: 1000MG PER DAY
     Dates: start: 20091020, end: 20091021
  3. PRIMPERAN TAB [Concomitant]
     Dosage: 20MG PER DAY
     Dates: start: 20091020, end: 20091021

REACTIONS (10)
  - ANAPHYLACTIC SHOCK [None]
  - BLOOD PRESSURE DECREASED [None]
  - CONJUNCTIVAL HYPERAEMIA [None]
  - DIARRHOEA [None]
  - MOVEMENT DISORDER [None]
  - RASH [None]
  - RASH GENERALISED [None]
  - RENAL FAILURE [None]
  - RESPIRATORY RATE INCREASED [None]
  - SHOCK [None]
